FAERS Safety Report 7410076-5 (Version None)
Quarter: 2011Q2

REPORT INFORMATION
  Report Type: 
  Country: None (occurrence: None)
  Receive Date: 20110412
  Receipt Date: 20110408
  Transmission Date: 20111010
  Serious: Yes (Hospitalization, Other)
  Sender: FDA-Public Use
  Company Number: GB-PFIZER INC-2011063942

PATIENT
  Age: 43 Year
  Sex: Female

DRUGS (7)
  1. ZOPICLONE [Concomitant]
     Indication: INSOMNIA
     Dosage: 7.5 MG, 1X/DAY
     Route: 048
  2. FLUOXETINE [Concomitant]
     Indication: DEPRESSION
     Dosage: 40 MG, 1X/DAY
     Route: 048
  3. AMITRIPTYLINE [Concomitant]
     Indication: PAIN
     Dosage: 10 MG, 1X/DAY
     Route: 048
  4. DIHYDROCODEINE [Concomitant]
     Indication: PAIN
     Dosage: 30 MG EIGHT TIMES DAILY
     Route: 048
  5. LYRICA [Suspect]
     Indication: FIBROMYALGIA
  6. LYRICA [Suspect]
     Indication: PAIN
  7. LYRICA [Suspect]
     Indication: EPILEPSY
     Dosage: 100 MG, 2X/DAY
     Route: 048
     Dates: start: 20110125

REACTIONS (2)
  - URINARY TRACT INFECTION [None]
  - URINARY RETENTION [None]
